FAERS Safety Report 23226008 (Version 1)
Quarter: 2023Q4

REPORT INFORMATION
  Report Type: Spontaneous
  Country: BR (occurrence: BR)
  Receive Date: 20231124
  Receipt Date: 20231124
  Transmission Date: 20240109
  Serious: Yes (Other)
  Sender: FDA-Public Use
  Company Number: BR-NOVOPROD-1142326

PATIENT
  Age: 66 Year
  Sex: Male
  Weight: 97.9 kg

DRUGS (7)
  1. RYBELSUS [Suspect]
     Active Substance: SEMAGLUTIDE
     Dosage: 14 MG, QD
     Dates: start: 20230731
  2. RYBELSUS [Suspect]
     Active Substance: SEMAGLUTIDE
     Indication: Type 2 diabetes mellitus
     Dosage: 3 MG FOR 30 DAYS
  3. RYBELSUS [Suspect]
     Active Substance: SEMAGLUTIDE
     Dosage: 7 MG PER DAY (DOSE INCREASED)
  4. METFORMIN [Concomitant]
     Active Substance: METFORMIN HYDROCHLORIDE
     Dosage: 2 G, QD
  5. GLICLAZIDE [Concomitant]
     Active Substance: GLICLAZIDE
     Dosage: 60 MG, QD
  6. PITAVASTATIN [Concomitant]
     Active Substance: PITAVASTATIN
     Dosage: 4 MG, QD
  7. HYDROCHLOROTHIAZIDE\OLMESARTAN MEDOXOMIL [Concomitant]
     Active Substance: HYDROCHLOROTHIAZIDE\OLMESARTAN MEDOXOMIL
     Dosage: 40/12.5 MG PER DAY

REACTIONS (4)
  - Mitral valve incompetence [Unknown]
  - Nausea [Recovered/Resolved]
  - Microalbuminuria [Unknown]
  - Ejection fraction decreased [Unknown]
